FAERS Safety Report 10153000 (Version 1)
Quarter: 2014Q2

REPORT INFORMATION
  Report Type: Spontaneous
  Country: JP (occurrence: JP)
  Receive Date: 20140505
  Receipt Date: 20140505
  Transmission Date: 20141212
  Serious: Yes (Hospitalization)
  Sender: FDA-Public Use
  Company Number: JP-GE HEALTHCARE MEDICAL DIAGNOSTICS-OMPQ-PR-1404S-0421

PATIENT
  Age: 66 Year
  Sex: Male

DRUGS (2)
  1. OMNIPAQUE [Suspect]
     Indication: RECTAL CANCER RECURRENT
     Route: 042
     Dates: start: 20140421, end: 20140421
  2. OMNIPAQUE [Suspect]
     Indication: DIAGNOSTIC PROCEDURE

REACTIONS (3)
  - Erythema [Not Recovered/Not Resolved]
  - Pruritus generalised [Unknown]
  - Rash [Not Recovered/Not Resolved]
